FAERS Safety Report 9456553 (Version 1)
Quarter: 2013Q3

REPORT INFORMATION
  Report Type: Spontaneous
  Country: JP (occurrence: None)
  Receive Date: 20130809
  Receipt Date: 20130809
  Transmission Date: 20140515
  Serious: Yes (Hospitalization)
  Sender: FDA-Public Use
  Company Number: 2013P1014976

PATIENT
  Age: 86 Year
  Sex: Female

DRUGS (2)
  1. DONEPEZIL [Suspect]
     Indication: DEMENTIA ALZHEIMER^S TYPE
  2. AMLODIPINE [Concomitant]

REACTIONS (5)
  - Syncope [None]
  - Torsade de pointes [None]
  - Atrial fibrillation [None]
  - Fall [None]
  - Adams-Stokes syndrome [None]
